FAERS Safety Report 22207196 (Version 1)
Quarter: 2023Q2

REPORT INFORMATION
  Report Type: Spontaneous
  Country: US (occurrence: None)
  Receive Date: 20230412
  Receipt Date: 20230412
  Transmission Date: 20230721
  Serious: No
  Sender: FDA-Public Use
  Company Number: None

PATIENT
  Sex: Male

DRUGS (2)
  1. TEMOZOLOMIDE [Suspect]
     Active Substance: TEMOZOLOMIDE
     Indication: Brain neoplasm malignant
     Dosage: OTHER QUANTITY : 1 CAPSULE;?FREQUENCY : AT BEDTIME;?
     Route: 048
     Dates: start: 202211
  2. TEMOZOLOMIDE [Suspect]
     Active Substance: TEMOZOLOMIDE
     Indication: Brain neoplasm malignant
     Dosage: OTHER QUANTITY : 1 CAPSULE;?FREQUENCY : AT BEDTIME;?
     Route: 048
     Dates: start: 202211

REACTIONS (1)
  - Therapy non-responder [None]
